FAERS Safety Report 6152066-9 (Version None)
Quarter: 2009Q2

REPORT INFORMATION
  Report Type: 
  Country: None (occurrence: None)
  Receive Date: 20090410
  Receipt Date: 20090409
  Transmission Date: 20091009
  Serious: Yes (Life-Threatening, Hospitalization, Other)
  Sender: FDA-Public Use
  Company Number: ZA-PFIZER INC-2008090952

PATIENT

DRUGS (12)
  1. TOLTERODINE TARTRATE [Suspect]
     Dosage: UNK
     Route: 048
     Dates: start: 20080214, end: 20080229
  2. MACRODANTIN [Concomitant]
     Route: 048
     Dates: start: 20080105
  3. DARIFENACIN [Concomitant]
     Route: 048
     Dates: start: 20080105
  4. ROBAXIN [Concomitant]
     Route: 048
     Dates: start: 20080107
  5. ALL OTHER THERAPEUTIC PRODUCTS [Concomitant]
     Route: 048
  6. HEXAZIDE [Concomitant]
     Route: 048
  7. CARDURA [Concomitant]
     Route: 048
  8. PHYSIOTENS [Concomitant]
     Route: 048
  9. ATENOLOL [Concomitant]
     Route: 048
  10. SPIRONOLACTONE [Concomitant]
     Route: 048
  11. GLUCOPHAGE [Concomitant]
     Route: 048
  12. NOVOMIX [Concomitant]
     Dates: start: 20071101

REACTIONS (1)
  - LYMPHOMA [None]
